FAERS Safety Report 26035177 (Version 1)
Quarter: 2025Q4

REPORT INFORMATION
  Report Type: Report from Study
  Country: US (occurrence: US)
  Receive Date: 20251112
  Receipt Date: 20251112
  Transmission Date: 20260118
  Serious: Yes (Hospitalization, Other)
  Sender: NOVO NORDISK
  Company Number: US-NOVOPROD-990439

PATIENT
  Age: 73 Year
  Sex: Male

DRUGS (1)
  1. NOVOLOG [Suspect]
     Active Substance: INSULIN ASPART
     Indication: Diabetes mellitus
     Dosage: UNK
     Route: 058

REACTIONS (12)
  - Localised infection [Recovered/Resolved]
  - Limb injury [Recovered/Resolved]
  - Delirium [Recovered/Resolved with Sequelae]
  - Neuropathy peripheral [Unknown]
  - Laboratory test abnormal [Not Recovered/Not Resolved]
  - Dialysis [Unknown]
  - Wrist fracture [Recovered/Resolved with Sequelae]
  - Cervical vertebral fracture [Recovered/Resolved with Sequelae]
  - Rib fracture [Recovered/Resolved]
  - Accident [Recovered/Resolved]
  - Pneumonia [Unknown]
  - COVID-19 [Unknown]

NARRATIVE: CASE EVENT DATE: 20221201
